FAERS Safety Report 20987620 (Version 1)
Quarter: 2022Q2

REPORT INFORMATION
  Report Type: Spontaneous
  Country: US (occurrence: None)
  Receive Date: 20220620
  Receipt Date: 20220620
  Transmission Date: 20220721
  Serious: No
  Sender: FDA-Public Use
  Company Number: None

PATIENT
  Age: 46 Year
  Sex: Male
  Weight: 101.6 kg

DRUGS (1)
  1. SIMPONI [Suspect]
     Active Substance: GOLIMUMAB
     Indication: Osteoporosis
     Dosage: INJECT 50MG  SUBCUTANEOUSLY ONCE MONTH  AS DIRECTED
     Dates: start: 202002, end: 202002

REACTIONS (1)
  - Fungal infection [None]
